FAERS Safety Report 5911465-8 (Version None)
Quarter: 2008Q4

REPORT INFORMATION
  Report Type: 
  Country: None (occurrence: None)
  Receive Date: 20081007
  Receipt Date: 20081002
  Transmission Date: 20090506
  Serious: Yes (Other)
  Sender: FDA-Public Use
  Company Number: TW-GILEAD-E2B_00000204

PATIENT
  Sex: Male
  Weight: 80.9 kg

DRUGS (3)
  1. ADEFOVIR DIPIVOXIL KIT [Suspect]
     Indication: HEPATIC NEOPLASM MALIGNANT
     Route: 048
     Dates: start: 20070511, end: 20071101
  2. ADEFOVIR DIPIVOXIL KIT [Suspect]
     Route: 048
     Dates: start: 20071116
  3. GLUCOBAY [Suspect]
     Indication: DIABETES MELLITUS

REACTIONS (2)
  - ALANINE AMINOTRANSFERASE INCREASED [None]
  - ASPARTATE AMINOTRANSFERASE INCREASED [None]
